FAERS Safety Report 20367239 (Version 5)
Quarter: 2022Q1

REPORT INFORMATION
  Report Type: Spontaneous
  Country: DE (occurrence: DE)
  Receive Date: 20220123
  Receipt Date: 20220311
  Transmission Date: 20220423
  Serious: Yes (Life-Threatening, Hospitalization, Other)
  Sender: FDA-Public Use
  Company Number: DE-SA-SAC20211230001248

PATIENT
  Age: 69 Year
  Sex: Male

DRUGS (19)
  1. CARFILZOMIB [Suspect]
     Active Substance: CARFILZOMIB
     Indication: Product used for unknown indication
     Dosage: UNK
     Route: 065
     Dates: start: 20211122
  2. DEXAMETHASONE [Suspect]
     Active Substance: DEXAMETHASONE
     Indication: Product used for unknown indication
     Dosage: UNK
     Route: 065
  3. ISATUXIMAB [Suspect]
     Active Substance: ISATUXIMAB
     Indication: Plasma cell myeloma refractory
     Dosage: UNK
     Route: 065
  4. POMALIDOMIDE [Suspect]
     Active Substance: POMALIDOMIDE
     Indication: Product used for unknown indication
     Dosage: UNK
     Route: 065
  5. ACYCLOVIR [Concomitant]
     Active Substance: ACYCLOVIR
     Indication: Infection prophylaxis
     Dosage: UNK
     Dates: start: 20170911
  6. METAMIZOLE [Concomitant]
     Active Substance: METAMIZOLE
     Indication: Bone pain
     Dosage: UNK
     Dates: start: 20170815
  7. POLYETHYLENE GLYCOLS [Concomitant]
     Active Substance: POLYETHYLENE GLYCOLS
     Indication: Constipation
     Dosage: UNK UNK, PRN
     Dates: start: 2017
  8. SULFAMETHOXAZOLE\TRIMETHOPRIM [Concomitant]
     Active Substance: SULFAMETHOXAZOLE\TRIMETHOPRIM
     Indication: Infection prophylaxis
     Dosage: UNK
     Dates: start: 20170911
  9. MONTELUKAST [Concomitant]
     Active Substance: MONTELUKAST SODIUM
     Indication: Rhinitis allergic
     Dosage: UNK
     Dates: start: 20211025
  10. PREGABALIN [Concomitant]
     Active Substance: PREGABALIN
     Indication: Bone pain
     Dosage: UNK
     Dates: start: 20170911
  11. TAMSULOSIN [Concomitant]
     Active Substance: TAMSULOSIN
     Indication: Benign prostatic hyperplasia
     Dosage: UNK
     Dates: start: 2005
  12. HUMAN RED BLOOD CELL [Concomitant]
     Active Substance: HUMAN RED BLOOD CELL
     Indication: Anaemia
     Dosage: UNK
     Dates: start: 20210927
  13. HYDROMORPHONE HYDROCHLORIDE [Concomitant]
     Active Substance: HYDROMORPHONE HYDROCHLORIDE
     Indication: Bone pain
     Dosage: UNK
     Dates: start: 20170815
  14. ALIZAPRIDE [Concomitant]
     Active Substance: ALIZAPRIDE
     Indication: Nausea
     Dosage: UNK
     Dates: start: 20211102
  15. PLATELETS [Concomitant]
     Active Substance: HUMAN PLATELET, ALLOGENIC
     Indication: Thrombocytopenia
     Dosage: UNK
     Dates: start: 20210601
  16. ACETAMINOPHEN [Concomitant]
     Active Substance: ACETAMINOPHEN
     Indication: Pyrexia
     Dosage: UNK
  17. CLEMASTINE [Concomitant]
     Active Substance: CLEMASTINE
     Indication: Allergy prophylaxis
     Dosage: UNK
  18. PANTOPRAZOLE [Concomitant]
     Active Substance: PANTOPRAZOLE
     Indication: Gastritis prophylaxis
     Dosage: UNK
     Dates: start: 20201026
  19. PAMIDRONATE [Concomitant]
     Active Substance: PAMIDRONATE DISODIUM
     Indication: Osteolysis
     Dosage: UNK
     Dates: start: 20170815

REACTIONS (7)
  - Neutropenia [Recovered/Resolved]
  - Neutropenia [Recovered/Resolved]
  - Febrile neutropenia [Recovered/Resolved]
  - Haematochezia [Recovered/Resolved]
  - Petechiae [Recovered/Resolved]
  - Cough [Recovering/Resolving]
  - Tachycardia [Recovered/Resolved]

NARRATIVE: CASE EVENT DATE: 20211102
